FAERS Safety Report 9196607 (Version 3)
Quarter: 2013Q2

REPORT INFORMATION
  Report Type: Spontaneous
  Country: IL (occurrence: IL)
  Receive Date: 20130328
  Receipt Date: 20130617
  Transmission Date: 20140414
  Serious: Yes (Other)
  Sender: FDA-Public Use
  Company Number: IL-SANOFI-AVENTIS-2013SA031435

PATIENT
  Age: 67 Year
  Sex: Male

DRUGS (2)
  1. TAXOTERE [Suspect]
     Indication: METASTATIC GASTRIC CANCER
     Route: 065
     Dates: start: 2012
  2. CORTICOSTEROID NOS [Concomitant]
     Indication: METASTATIC GASTRIC CANCER
     Dates: start: 2012

REACTIONS (4)
  - Pulmonary hypertension [Unknown]
  - Cardiac failure congestive [Unknown]
  - Pleural effusion [Unknown]
  - Pericardial effusion [Unknown]
